FAERS Safety Report 16590544 (Version 1)
Quarter: 2019Q3

REPORT INFORMATION
  Report Type: Spontaneous
  Country: US (occurrence: US)
  Receive Date: 20190717
  Receipt Date: 20190717
  Transmission Date: 20191004
  Serious: Yes (Hospitalization)
  Sender: FDA-Public Use
  Company Number: None

PATIENT
  Age: 89 Year
  Sex: Female
  Weight: 53.15 kg

DRUGS (22)
  1. AUGMENTIN [Concomitant]
     Active Substance: AMOXICILLIN\CLAVULANATE POTASSIUM
  2. ATORVASTATIN [Concomitant]
     Active Substance: ATORVASTATIN
  3. CALCIUM+D3 [Concomitant]
  4. CITALOPRAM [Concomitant]
     Active Substance: CITALOPRAM HYDROBROMIDE
  5. METOPROLOL. [Concomitant]
     Active Substance: METOPROLOL
  6. NINLARO [Suspect]
     Active Substance: IXAZOMIB CITRATE
     Indication: PLASMA CELL MYELOMA
     Dosage: ?          OTHER FREQUENCY:WEEKLY;?
     Route: 048
     Dates: start: 20181227, end: 20190717
  7. AMIODARONE [Concomitant]
     Active Substance: AMIODARONE
  8. ISOSORBID MONONITRATE [Concomitant]
     Active Substance: ISOSORBIDE MONONITRATE
  9. AMLODIPINE [Concomitant]
     Active Substance: AMLODIPINE BESYLATE
  10. VALSARTAN. [Concomitant]
     Active Substance: VALSARTAN
  11. ACETAMINOPHEN ES [Concomitant]
  12. PRADAXA [Concomitant]
     Active Substance: DABIGATRAN ETEXILATE MESYLATE
  13. METRONIDAZOLE. [Concomitant]
     Active Substance: METRONIDAZOLE
  14. TRAMADOL. [Concomitant]
     Active Substance: TRAMADOL
  15. ROBITUSSIN COUGH+CHEST CONG [Concomitant]
  16. FAMOTIDINE. [Concomitant]
     Active Substance: FAMOTIDINE
  17. NEURONTIN [Concomitant]
     Active Substance: GABAPENTIN
  18. ONDANSETRON [Concomitant]
     Active Substance: ONDANSETRON
  19. ASPIRIN. [Concomitant]
     Active Substance: ASPIRIN
  20. REMEDY CALAZIME [Concomitant]
  21. HYDRALAZINE [Concomitant]
     Active Substance: HYDRALAZINE HYDROCHLORIDE
  22. POTASSIUM CL [Concomitant]
     Active Substance: POTASSIUM CHLORIDE

REACTIONS (1)
  - Infection [None]

NARRATIVE: CASE EVENT DATE: 20190717
